FAERS Safety Report 16067759 (Version 1)
Quarter: 2019Q2

REPORT INFORMATION
  Report Type: Spontaneous
  Country: US (occurrence: US)
  Receive Date: 20190313
  Receipt Date: 20190313
  Transmission Date: 20190711
  Serious: Yes (Hospitalization)
  Sender: FDA-Public Use
  Company Number: None

PATIENT
  Age: 23 Year
  Sex: Female
  Weight: 57.8 kg

DRUGS (3)
  1. LAMOTRIGINE. [Suspect]
     Active Substance: LAMOTRIGINE
     Indication: BIPOLAR DISORDER
     Dates: start: 20181113, end: 20181208
  2. FLUCONAZOLE. [Concomitant]
     Active Substance: FLUCONAZOLE
  3. SERTRALINE [Concomitant]
     Active Substance: SERTRALINE HYDROCHLORIDE

REACTIONS (4)
  - Stevens-Johnson syndrome [None]
  - Rash generalised [None]
  - Anorectal discomfort [None]
  - Vulvovaginal discomfort [None]

NARRATIVE: CASE EVENT DATE: 20181208
